FAERS Safety Report 5453681-8 (Version None)
Quarter: 2007Q3

REPORT INFORMATION
  Report Type: 
  Country: None (occurrence: None)
  Receive Date: 20070917
  Receipt Date: 20070910
  Transmission Date: 20080115
  Serious: Yes (Death)
  Sender: FDA-Public Use
  Company Number: FR-ASTRAZENECA-2007CG01275

PATIENT
  Age: 26054 Day
  Sex: Female
  Weight: 92 kg

DRUGS (3)
  1. ARIMIDEX [Suspect]
     Indication: BREAST CANCER FEMALE
     Route: 048
     Dates: start: 20060831
  2. TAVANIC [Concomitant]
     Indication: ANTIBIOTIC PROPHYLAXIS
     Route: 048
     Dates: start: 20070622, end: 20070807
  3. PYOSTACINE [Concomitant]
     Indication: ANTIBIOTIC PROPHYLAXIS
     Route: 048
     Dates: start: 20070807, end: 20070815

REACTIONS (3)
  - BRONCHITIS CHRONIC [None]
  - SUDDEN DEATH [None]
  - SUPERINFECTION BACTERIAL [None]
